FAERS Safety Report 23645148 (Version 18)
Quarter: 2024Q4

REPORT INFORMATION
  Report Type: Spontaneous
  Country: US (occurrence: US)
  Receive Date: 20240318
  Receipt Date: 20241205
  Transmission Date: 20250114
  Serious: Yes (Other)
  Sender: NOVARTIS
  Company Number: US-002147023-NVSC2024US058209

PATIENT
  Age: 63 Year
  Sex: Female

DRUGS (1)
  1. KESIMPTA [Suspect]
     Active Substance: OFATUMUMAB
     Indication: Relapsing-remitting multiple sclerosis
     Dosage: UNK UNK, QMO
     Route: 065
     Dates: start: 202310

REACTIONS (5)
  - Open fracture [Unknown]
  - Blood pressure abnormal [Unknown]
  - Influenza like illness [Recovered/Resolved]
  - Haemorrhage [Unknown]
  - Feeling abnormal [Unknown]
